FAERS Safety Report 10050777 (Version 1)
Quarter: 2014Q2

REPORT INFORMATION
  Report Type: Spontaneous
  Country: US (occurrence: US)
  Receive Date: 20140401
  Receipt Date: 20140401
  Transmission Date: 20141212
  Serious: No
  Sender: FDA-Public Use
  Company Number: US-ASTRAZENECA-2013SE76605

PATIENT
  Age: 57 Year
  Sex: Male
  Weight: 83.9 kg

DRUGS (4)
  1. NEXIUM [Suspect]
     Indication: BARRETT^S OESOPHAGUS
     Route: 048
     Dates: start: 2004
  2. MORPHINE [Suspect]
     Route: 065
  3. GLYBURIDE [Concomitant]
     Indication: DIABETES MELLITUS
     Route: 048
  4. METFORMIN [Concomitant]
     Indication: DIABETES MELLITUS
     Route: 048
     Dates: start: 2005

REACTIONS (7)
  - Insulin-requiring type 2 diabetes mellitus [Unknown]
  - Intentional product misuse [Unknown]
  - Gastrooesophageal reflux disease [Unknown]
  - Dyspepsia [Unknown]
  - Sleep disorder due to a general medical condition [Unknown]
  - Intentional product misuse [Unknown]
  - Hypersensitivity [None]
